FAERS Safety Report 17077565 (Version 1)
Quarter: 2019Q4

REPORT INFORMATION
  Report Type: Spontaneous
  Country: JP (occurrence: JP)
  Receive Date: 20191126
  Receipt Date: 20191126
  Transmission Date: 20200122
  Serious: Yes (Hospitalization)
  Sender: FDA-Public Use
  Company Number: JP-EISAI MEDICAL RESEARCH-EC-2019-065935

PATIENT
  Age: 80 Year
  Sex: Male

DRUGS (2)
  1. LENVATINIB [Suspect]
     Active Substance: LENVATINIB
     Indication: THYROID CANCER STAGE IV
     Route: 048
  2. LENVATINIB [Suspect]
     Active Substance: LENVATINIB
     Dosage: DOSE AND FREQUENCY NOT PROVIDED
     Route: 048

REACTIONS (3)
  - Cholecystitis [Unknown]
  - Dysphagia [Unknown]
  - Hypophagia [Unknown]
